FAERS Safety Report 25352586 (Version 1)
Quarter: 2025Q2

REPORT INFORMATION
  Report Type: Spontaneous
  Country: US (occurrence: US)
  Receive Date: 20250523
  Receipt Date: 20250523
  Transmission Date: 20250716
  Serious: Yes (Other)
  Sender: MYLAN
  Company Number: US-MYLANLABS-2025M1043206

PATIENT
  Sex: Male
  Weight: 133.4 kg

DRUGS (4)
  1. YUPELRI [Suspect]
     Active Substance: REVEFENACIN
     Indication: Chronic obstructive pulmonary disease
     Dosage: 3 MILLILITER, QD (DAILY)
     Dates: start: 20250414
  2. YUPELRI [Suspect]
     Active Substance: REVEFENACIN
     Dosage: 3 MILLILITER, QD (DAILY)
     Route: 055
     Dates: start: 20250414
  3. YUPELRI [Suspect]
     Active Substance: REVEFENACIN
     Dosage: 3 MILLILITER, QD (DAILY)
     Route: 055
     Dates: start: 20250414
  4. YUPELRI [Suspect]
     Active Substance: REVEFENACIN
     Dosage: 3 MILLILITER, QD (DAILY)
     Dates: start: 20250414

REACTIONS (1)
  - Dyspnoea [Unknown]
